FAERS Safety Report 20497012 (Version 1)
Quarter: 2022Q1

REPORT INFORMATION
  Report Type: Spontaneous
  Country: US (occurrence: US)
  Receive Date: 20220221
  Receipt Date: 20220221
  Transmission Date: 20220423
  Serious: No
  Sender: FDA-Public Use
  Company Number: US-ORGANON-O2202USA001379

PATIENT
  Sex: Female
  Weight: 112.47 kg

DRUGS (2)
  1. NEXPLANON [Suspect]
     Active Substance: ETONOGESTREL
     Dosage: 1 ROD , 68 MG IN LEFT UPPER ARM
     Route: 059
     Dates: start: 2013
  2. NEXPLANON [Suspect]
     Active Substance: ETONOGESTREL
     Dosage: 1 ROD IN RIGHT ARM
     Route: 059
     Dates: start: 2016, end: 20220128

REACTIONS (7)
  - Device placement issue [Unknown]
  - Complication associated with device [Recovered/Resolved]
  - Device issue [Not Recovered/Not Resolved]
  - Overdose [Unknown]
  - Incorrect product administration duration [Unknown]
  - Incorrect product administration duration [Unknown]
  - No adverse event [Unknown]

NARRATIVE: CASE EVENT DATE: 20160101
